APPROVED DRUG PRODUCT: FIRDAPSE
Active Ingredient: AMIFAMPRIDINE PHOSPHATE
Strength: EQ 10MG BASE
Dosage Form/Route: TABLET;ORAL
Application: N208078 | Product #001
Applicant: CATALYST PHARMACEUTICALS INC
Approved: Nov 28, 2018 | RLD: Yes | RS: Yes | Type: RX

PATENTS:
Patent 11274332 | Expires: Jun 29, 2032
Patent 11274331 | Expires: Jun 29, 2032
Patent 10793893 | Expires: May 26, 2034
Patent 11268128 | Expires: Jun 29, 2032
Patent 11060128 | Expires: Jun 29, 2032
Patent 10626088 | Expires: Feb 25, 2037